FAERS Safety Report 25420976 (Version 1)
Quarter: 2025Q2

REPORT INFORMATION
  Report Type: Spontaneous
  Country: US (occurrence: US)
  Receive Date: 20250611
  Receipt Date: 20250611
  Transmission Date: 20250717
  Serious: No
  Sender: ELI LILLY AND COMPANY
  Company Number: US-ELI_LILLY_AND_COMPANY-US202506006086

PATIENT
  Age: 65 Year
  Sex: Female

DRUGS (1)
  1. ZEPBOUND [Suspect]
     Active Substance: TIRZEPATIDE
     Indication: Weight control
     Route: 065
     Dates: start: 20250528

REACTIONS (6)
  - Insomnia [Unknown]
  - Somnolence [Unknown]
  - Headache [Unknown]
  - Anxiety [Unknown]
  - Dyspepsia [Unknown]
  - Abdominal discomfort [Unknown]
